FAERS Safety Report 5693680-4 (Version None)
Quarter: 2008Q2

REPORT INFORMATION
  Report Type: 
  Country: None (occurrence: None)
  Receive Date: 20080403
  Receipt Date: 20080328
  Transmission Date: 20081010
  Serious: Yes (Hospitalization)
  Sender: FDA-Public Use
  Company Number: LT-ASTRAZENECA-2008SE01625

PATIENT
  Age: 60 Year
  Sex: Female

DRUGS (2)
  1. BETALOC ZOK [Suspect]
     Indication: HYPERTENSION
     Route: 048
  2. FINLEPSIN [Concomitant]

REACTIONS (2)
  - ACCIDENTAL OVERDOSE [None]
  - ATRIOVENTRICULAR BLOCK [None]
